FAERS Safety Report 21585139 (Version 1)
Quarter: 2022Q4

REPORT INFORMATION
  Report Type: Spontaneous
  Country: CN (occurrence: CN)
  Receive Date: 20221111
  Receipt Date: 20221111
  Transmission Date: 20230113
  Serious: Yes (Hospitalization)
  Sender: FDA-Public Use
  Company Number: CN-ELI_LILLY_AND_COMPANY-CN202211001113

PATIENT
  Age: 81 Year
  Sex: Male
  Weight: 55 kg

DRUGS (9)
  1. INSULIN LISPRO [Suspect]
     Active Substance: INSULIN LISPRO
     Indication: Diabetes mellitus
     Dosage: 6 INTERNATIONAL UNIT, TID
     Route: 058
     Dates: start: 20220906
  2. INSULIN LISPRO [Suspect]
     Active Substance: INSULIN LISPRO
     Dosage: 6 INTERNATIONAL UNIT, EACH MORNING BEFORE MEALS
     Route: 058
     Dates: start: 20220910, end: 20220913
  3. INSULIN LISPRO [Suspect]
     Active Substance: INSULIN LISPRO
     Dosage: 6 INTERNATIONAL UNIT, DAILY (AT NOON) BEFORE MEALS
     Route: 058
     Dates: start: 20220910, end: 20220913
  4. INSULIN LISPRO [Suspect]
     Active Substance: INSULIN LISPRO
     Dosage: 4 INTERNATIONAL UNIT, EACH EVENING BEFORE MEALS
     Route: 058
     Dates: start: 20220910, end: 20220913
  5. INSULIN GLARGINE [Suspect]
     Active Substance: INSULIN GLARGINE
     Indication: Diabetes mellitus
     Dosage: 6 INTERNATIONAL UNIT, DAILY
     Route: 058
     Dates: start: 20220906
  6. INSULIN GLARGINE [Suspect]
     Active Substance: INSULIN GLARGINE
     Dosage: 4 INTERNATIONAL UNIT, EACH EVENING (NIGHT)
     Route: 058
     Dates: start: 20220910, end: 20220911
  7. ACARBOSE [Concomitant]
     Active Substance: ACARBOSE
     Indication: Diabetes mellitus
     Dosage: 50 MG, TID
     Route: 048
     Dates: start: 20180307, end: 20220915
  8. ASPIRIN [Concomitant]
     Active Substance: ASPIRIN
     Indication: Cerebral infarction
     Dosage: 0.1 G, DAILY
     Route: 048
     Dates: start: 20180307, end: 20220915
  9. ATORVASTATIN CALCIUM [Concomitant]
     Active Substance: ATORVASTATIN CALCIUM
     Indication: Cerebral infarction
     Dosage: 10 MG, DAILY
     Route: 048
     Dates: start: 20180307, end: 20220915

REACTIONS (3)
  - Somnolence [Recovered/Resolved]
  - Pain [Unknown]
  - Blood glucose increased [Unknown]

NARRATIVE: CASE EVENT DATE: 20220906
